FAERS Safety Report 5448734-4 (Version None)
Quarter: 2007Q3

REPORT INFORMATION
  Report Type: 
  Country: None (occurrence: None)
  Receive Date: 20070911
  Receipt Date: 20070904
  Transmission Date: 20080115
  Serious: Yes (Hospitalization)
  Sender: FDA-Public Use
  Company Number: B0482829A

PATIENT
  Age: 66 Year
  Sex: Male
  Weight: 69 kg

DRUGS (3)
  1. ZOVIRAX [Suspect]
     Indication: HERPES ZOSTER
     Dosage: 250MG THREE TIMES PER DAY
     Route: 042
     Dates: start: 20070803, end: 20070807
  2. LOXONIN [Concomitant]
     Indication: HERPES ZOSTER
     Route: 048
     Dates: start: 20070806, end: 20070807
  3. CYTOTEC [Concomitant]
     Indication: HERPES ZOSTER
     Route: 048
     Dates: start: 20070806, end: 20070807

REACTIONS (7)
  - ALTERED STATE OF CONSCIOUSNESS [None]
  - AMNESIA [None]
  - DISORIENTATION [None]
  - ENCEPHALOPATHY [None]
  - MYOCLONUS [None]
  - RETROGRADE AMNESIA [None]
  - SOMNOLENCE [None]
